FAERS Safety Report 6474661-X (Version None)
Quarter: 2009Q4

REPORT INFORMATION
  Report Type: 
  Country: None (occurrence: None)
  Receive Date: 20091204
  Receipt Date: 20091124
  Transmission Date: 20100525
  Serious: Yes (Other)
  Sender: FDA-Public Use
  Company Number: JP-JNJFOC-20091103015

PATIENT
  Sex: Male
  Weight: 54 kg

DRUGS (17)
  1. REMICADE [Suspect]
     Route: 042
     Dates: start: 20080314, end: 20091105
  2. REMICADE [Suspect]
     Route: 042
     Dates: start: 20080314, end: 20091105
  3. REMICADE [Suspect]
     Route: 042
     Dates: start: 20080314, end: 20091105
  4. REMICADE [Suspect]
     Route: 042
     Dates: start: 20080314, end: 20091105
  5. REMICADE [Suspect]
     Route: 042
     Dates: start: 20080314, end: 20091105
  6. REMICADE [Suspect]
     Indication: ANAL FISTULA
     Route: 042
     Dates: start: 20080314, end: 20091105
  7. REMICADE [Suspect]
     Indication: CROHN'S DISEASE
     Route: 042
     Dates: start: 20080314, end: 20091105
  8. PENTASA [Concomitant]
     Indication: CROHN'S DISEASE
     Route: 048
  9. BIOLACTIS [Concomitant]
     Indication: CROHN'S DISEASE
     Route: 048
  10. PROTECADIN [Concomitant]
     Indication: CROHN'S DISEASE
     Route: 048
  11. LOXONIN [Concomitant]
     Indication: CROHN'S DISEASE
     Route: 048
  12. SELBEX [Concomitant]
     Indication: CROHN'S DISEASE
     Route: 048
  13. BETAMETHASONE [Concomitant]
     Indication: PROPHYLAXIS
     Route: 048
  14. CHLORPHENIRAMINE [Concomitant]
     Indication: PROPHYLAXIS
     Route: 048
  15. PSEUDOEPHEDRINE HCL [Concomitant]
     Indication: PROPHYLAXIS
     Route: 048
  16. CALONAL [Concomitant]
     Indication: PROPHYLAXIS
     Route: 048
  17. SOL MEDROL [Concomitant]
     Indication: PROPHYLAXIS
     Route: 042

REACTIONS (2)
  - INFUSION RELATED REACTION [None]
  - OXYGEN SATURATION DECREASED [None]
